FAERS Safety Report 5258036-7 (Version None)
Quarter: 2007Q1

REPORT INFORMATION
  Report Type: 
  Country: None (occurrence: None)
  Receive Date: 20070307
  Receipt Date: 20070223
  Transmission Date: 20070707
  Serious: Yes (Disabling, Other)
  Sender: FDA-Public Use
  Company Number: FR-PFIZER INC-2006138143

PATIENT
  Sex: Female
  Weight: 75 kg

DRUGS (8)
  1. LYRICA [Suspect]
     Route: 048
     Dates: start: 20061009, end: 20061023
  2. ALL OTHER THERAPEUTIC PRODUCTS [Concomitant]
  3. KLIPAL [Concomitant]
     Dosage: DAILY DOSE:1.2GRAM
     Route: 048
     Dates: start: 20061009, end: 20061106
  4. DICODIN [Concomitant]
     Route: 048
     Dates: start: 20061009, end: 20061106
  5. LIORESAL ^NOVARTIS^ [Concomitant]
     Route: 048
     Dates: start: 20061009, end: 20061106
  6. LACTULOSE [Concomitant]
     Dosage: DAILY DOSE:10MG
     Route: 048
     Dates: start: 20061009, end: 20061106
  7. SICCAFLUID [Concomitant]
     Dates: start: 20061007
  8. DACRYOSERUM [Concomitant]
     Dates: start: 20061007

REACTIONS (5)
  - EYE SWELLING [None]
  - HYPERSENSITIVITY [None]
  - LACRIMATION INCREASED [None]
  - OEDEMA MOUTH [None]
  - SWOLLEN TONGUE [None]
